FAERS Safety Report 7893266-7 (Version None)
Quarter: 2011Q4

REPORT INFORMATION
  Report Type: 
  Country: None (occurrence: None)
  Receive Date: 20111104
  Receipt Date: 20111024
  Transmission Date: 20120403
  Serious: Yes (Hospitalization)
  Sender: FDA-Public Use
  Company Number: AU-JNJFOC-20110905326

PATIENT
  Sex: Female
  Weight: 72 kg

DRUGS (13)
  1. SEREPAX [Concomitant]
     Route: 048
  2. GENTEAL EYE DROPS [Concomitant]
     Route: 047
  3. PRAVACHOL [Concomitant]
     Route: 048
  4. INVEGA [Suspect]
     Indication: SCHIZOAFFECTIVE DISORDER
     Route: 048
     Dates: end: 20110501
  5. ACETAMINOPHEN W/ CODEINE [Concomitant]
     Indication: PAIN
     Route: 048
  6. CLOPIDOGREL [Concomitant]
  7. MOVIPREP [Concomitant]
     Route: 065
  8. NEXIUM [Concomitant]
     Route: 048
  9. ACETAMINOPHEN W/ CODEINE [Concomitant]
     Route: 048
  10. SYMBICORT [Concomitant]
     Indication: COUGH
     Route: 055
  11. BRICANYL [Concomitant]
  12. PERIACTIN [Concomitant]
     Route: 048
  13. VITAMIN D [Concomitant]
     Route: 048

REACTIONS (3)
  - BALANCE DISORDER [None]
  - BODY TEMPERATURE FLUCTUATION [None]
  - EYE PAIN [None]
